FAERS Safety Report 12887648 (Version 5)
Quarter: 2017Q1

REPORT INFORMATION
  Report Type: Report from Study
  Country: JP (occurrence: JP)
  Receive Date: 20161026
  Receipt Date: 20170224
  Transmission Date: 20170428
  Serious: Yes (Hospitalization)
  Sender: FDA-Public Use
  Company Number: JP-TAKEDA-2016TJP022827

PATIENT
  Age: 64 Year
  Sex: Male
  Weight: 48.9 kg

DRUGS (21)
  1. LENALIDOMIDE [Suspect]
     Active Substance: LENALIDOMIDE
     Indication: PLASMA CELL MYELOMA
     Dosage: 25 MG, QD
     Route: 048
     Dates: start: 20140410
  2. IXAZOMIB [Suspect]
     Active Substance: IXAZOMIB
     Dosage: UNK, 1/WEEK
     Route: 048
     Dates: start: 20151022
  3. LENALIDOMIDE [Suspect]
     Active Substance: LENALIDOMIDE
     Dosage: 10 MG, QD
     Route: 048
     Dates: start: 20160901, end: 20161017
  4. OLOPATADINE HYDROCHLORIDE. [Concomitant]
     Active Substance: OLOPATADINE HYDROCHLORIDE
     Indication: CHRONIC SINUSITIS
     Dosage: 5 MG, UNK
     Route: 048
     Dates: start: 20150818, end: 20161115
  5. DIQUAS [Concomitant]
     Active Substance: DIQUAFOSOL TETRASODIUM
     Indication: DRY EYE
     Dosage: UNK, QID
     Route: 047
     Dates: start: 20150713, end: 20161020
  6. LENALIDOMIDE [Suspect]
     Active Substance: LENALIDOMIDE
     Dosage: 10 MG, QD
     Route: 048
     Dates: start: 20151022
  7. ZOVIRAX [Concomitant]
     Active Substance: ACYCLOVIR
     Indication: PROPHYLAXIS
     Dosage: 200 MG, QD
     Route: 048
     Dates: start: 20140410, end: 20161213
  8. BAYASPIRIN [Concomitant]
     Active Substance: ASPIRIN
     Indication: THROMBOSIS PROPHYLAXIS
     Dosage: 100 MG, QD
     Route: 048
     Dates: start: 20151126, end: 20161020
  9. LYRICA [Concomitant]
     Active Substance: PREGABALIN
     Indication: PERIPHERAL SENSORY NEUROPATHY
     Dosage: 75 MG, BID
     Route: 048
     Dates: start: 20160816, end: 20161227
  10. LAC B [Concomitant]
     Active Substance: BIFIDOBACTERIUM SPP.
     Indication: FAECES SOFT
     Dosage: 1 G, UNK
     Route: 048
     Dates: start: 20160905
  11. IXAZOMIB [Suspect]
     Active Substance: IXAZOMIB
     Dosage: UNK, 1/WEEK
     Route: 048
     Dates: start: 20160901, end: 20161011
  12. LENALIDOMIDE [Suspect]
     Active Substance: LENALIDOMIDE
     Dosage: 15 MG, QD
     Route: 048
     Dates: start: 20140508
  13. DEXAMETHASONE. [Suspect]
     Active Substance: DEXAMETHASONE
     Indication: PLASMA CELL MYELOMA
     Dosage: 40 MG, 1/WEEK
     Route: 048
     Dates: start: 20140410
  14. CARBOCISTEINE [Concomitant]
     Active Substance: CARBOCYSTEINE
     Indication: CHRONIC SINUSITIS
     Dosage: 500 MG, UNK
     Route: 048
     Dates: start: 20150818
  15. DEXAMETHASONE. [Suspect]
     Active Substance: DEXAMETHASONE
     Dosage: 40 MG, 1/WEEK
     Route: 048
     Dates: start: 20160901, end: 20161018
  16. NEXIUM [Concomitant]
     Active Substance: ESOMEPRAZOLE MAGNESIUM
     Indication: GASTRITIS PROPHYLAXIS
     Dosage: 20 MG, QD
     Route: 048
     Dates: start: 20140410, end: 20161213
  17. SANBETASON [Concomitant]
     Active Substance: DEXAMETHASONE
     Indication: UPPER RESPIRATORY TRACT INFECTION
     Dosage: UNK, BID
     Route: 045
     Dates: start: 20150818, end: 20161020
  18. IXAZOMIB [Suspect]
     Active Substance: IXAZOMIB
     Indication: PLASMA CELL MYELOMA
     Dosage: UNK, 1/WEEK
     Route: 048
     Dates: start: 20140410
  19. DEXAMETHASONE. [Suspect]
     Active Substance: DEXAMETHASONE
     Dosage: 40 MG, 1/WEEK
     Route: 048
     Dates: start: 20151022
  20. PRANLUKAST [Concomitant]
     Active Substance: PRANLUKAST
     Indication: CHRONIC SINUSITIS
     Dosage: 225 MG, UNK
     Route: 048
     Dates: start: 20150818, end: 20161115
  21. NASONEX [Concomitant]
     Active Substance: MOMETASONE FUROATE
     Indication: CHRONIC SINUSITIS
     Dosage: 200 ?G, UNK
     Route: 045
     Dates: start: 20150818, end: 20161226

REACTIONS (1)
  - Pneumonia [Recovered/Resolved]

NARRATIVE: CASE EVENT DATE: 20161020
